FAERS Safety Report 5412204-X (Version None)
Quarter: 2007Q3

REPORT INFORMATION
  Report Type: 
  Country: None (occurrence: None)
  Receive Date: 20070713
  Receipt Date: 20070514
  Transmission Date: 20080115
  Serious: No
  Sender: FDA-Public Use
  Company Number: 2007SP001787

PATIENT
  Age: 63 Year
  Sex: Female
  Weight: 77.1115 kg

DRUGS (12)
  1. LUNESTA [Suspect]
     Indication: INSOMNIA
     Dosage: 2 MG;HS;ORAL
     Route: 048
     Dates: start: 20070426
  2. METFORMIN HCL [Concomitant]
  3. NEXIUM [Concomitant]
  4. LEXAPRO [Concomitant]
  5. KLONOPIN [Concomitant]
  6. CARAFATE [Concomitant]
  7. VALSARTAN [Concomitant]
  8. CARTIA XT [Concomitant]
  9. ZESTRIL [Concomitant]
  10. CRESTOR [Concomitant]
  11. TOPROL-XL [Concomitant]
  12. INSULIN [Concomitant]

REACTIONS (1)
  - INITIAL INSOMNIA [None]
